FAERS Safety Report 26195797 (Version 1)
Quarter: 2025Q4

REPORT INFORMATION
  Report Type: Spontaneous
  Country: CN (occurrence: CN)
  Receive Date: 20251224
  Receipt Date: 20251224
  Transmission Date: 20260118
  Serious: Yes (Hospitalization)
  Sender: SUPERNUS
  Company Number: CN-SUP-SUP202512-005180

PATIENT
  Age: 48 Year
  Sex: Male

DRUGS (3)
  1. OXCARBAZEPINE [Suspect]
     Active Substance: OXCARBAZEPINE
     Indication: Bipolar disorder
     Dosage: 1.8MG PER DAY
  2. OLANZAPINE [Suspect]
     Active Substance: OLANZAPINE
     Indication: Bipolar disorder
     Dosage: 20MG PER DAY
  3. OLANZAPINE [Suspect]
     Active Substance: OLANZAPINE
     Dosage: REDUCED TO 10MG PER DAY

REACTIONS (4)
  - Hypochloraemia [Recovered/Resolved]
  - Neuroleptic malignant syndrome [Recovered/Resolved]
  - Hyponatraemia [Recovered/Resolved]
  - Drug effective for unapproved indication [Unknown]
